FAERS Safety Report 5194325-2 (Version None)
Quarter: 2006Q4

REPORT INFORMATION
  Report Type: 
  Country: None (occurrence: None)
  Receive Date: 20061228
  Receipt Date: 20061124
  Transmission Date: 20070319
  Serious: Yes (Death, Hospitalization)
  Sender: FDA-Public Use
  Company Number: JP-PFIZER INC-2006145811

PATIENT
  Sex: Female
  Weight: 49 kg

DRUGS (4)
  1. ZYVOX [Suspect]
     Indication: STAPHYLOCOCCAL INFECTION
     Dosage: DAILY DOSE:600MG
     Route: 042
     Dates: start: 20061109, end: 20061126
  2. ZYVOX [Suspect]
     Dosage: DAILY DOSE:1200MG
     Route: 042
     Dates: start: 20061109, end: 20061126
  3. ZYVOX TABLET [Suspect]
     Indication: RENAL FAILURE
     Dosage: DAILY DOSE:1200MG
     Route: 048
  4. ZYVOX TABLET [Suspect]
     Indication: STAPHYLOCOCCAL INFECTION

REACTIONS (6)
  - BONE MARROW FAILURE [None]
  - DISSEMINATED INTRAVASCULAR COAGULATION [None]
  - PLATELET COUNT DECREASED [None]
  - PNEUMONIA [None]
  - RED BLOOD CELL COUNT DECREASED [None]
  - WHITE BLOOD CELL COUNT DECREASED [None]
